FAERS Safety Report 15425667 (Version 4)
Quarter: 2023Q2

REPORT INFORMATION
  Report Type: Report from Study
  Country: PT (occurrence: PT)
  Receive Date: 20180925
  Receipt Date: 20230613
  Transmission Date: 20230721
  Serious: Yes (Life-Threatening, Other)
  Sender: FDA-Public Use
  Company Number: CN-GKKIN-201809014-PI511454-9

PATIENT
  Age: 26 Year
  Sex: Male

DRUGS (31)
  1. OLANZAPINE [Suspect]
     Active Substance: OLANZAPINE
     Indication: HIV infection
     Dosage: UNK UNK, UNKNOWN
     Route: 065
  2. OLANZAPINE [Suspect]
     Active Substance: OLANZAPINE
     Indication: Chronic hepatitis C
     Dosage: UNK UNK, UNKNOWN
     Route: 048
  3. OLANZAPINE [Suspect]
     Active Substance: OLANZAPINE
     Indication: Hepatitis C
     Dosage: UNK UNK, UNKNOWN (1 ML OF TRIAMCINOLONE 40 MG INJECTED)
     Route: 065
  4. LOPINAVIR\RITONAVIR [Suspect]
     Active Substance: LOPINAVIR\RITONAVIR
     Indication: Hepatitis C
     Dosage: UNK UNK, UNKNOWN (1 ML OF TRIAMCINOLONE 40 MG INJECTED)
     Route: 065
  5. LOPINAVIR\RITONAVIR [Suspect]
     Active Substance: LOPINAVIR\RITONAVIR
     Indication: Chronic hepatitis C
     Dosage: UNK UNK, UNKNOWN
     Route: 065
  6. LOPINAVIR\RITONAVIR [Suspect]
     Active Substance: LOPINAVIR\RITONAVIR
     Indication: HIV infection
     Dosage: UNK UNK, UNKNOWN
     Route: 048
  7. TIAPRIDE [Suspect]
     Active Substance: TIAPRIDE
     Indication: Chronic hepatitis C
     Dosage: UNK UNK, UNKNOWN
     Route: 065
  8. TIAPRIDE [Suspect]
     Active Substance: TIAPRIDE
     Indication: Hepatitis C
     Dosage: UNK UNK, UNKNOWN (1 ML OF TRIAMCINOLONE 40 MG INJECTED)
     Route: 065
  9. TIAPRIDE [Suspect]
     Active Substance: TIAPRIDE
     Indication: HIV infection
     Dosage: UNK UNK, UNKNOWN
     Route: 065
  10. CLOXAZOLAM [Suspect]
     Active Substance: CLOXAZOLAM
     Indication: Hepatitis C
     Dosage: UNK UNK, OTHER (1 ML OF TRIAMCINOLONE 40 MG INJECTED)
     Route: 065
  11. CLOXAZOLAM [Suspect]
     Active Substance: CLOXAZOLAM
     Indication: Chronic hepatitis C
     Dosage: UNK UNK, UNKNOWN
     Route: 048
  12. CLOXAZOLAM [Suspect]
     Active Substance: CLOXAZOLAM
     Indication: HIV infection
     Dosage: UNK UNK, UNKNOWN
     Route: 065
  13. STAVUDINE [Suspect]
     Active Substance: STAVUDINE
     Indication: Chronic hepatitis C
     Dosage: UNK UNK, UNKNOWN
     Route: 065
  14. STAVUDINE [Suspect]
     Active Substance: STAVUDINE
     Indication: Hepatitis C
     Dosage: UNK UNK, UNKNOWN (1 ML OF TRIAMCINOLONE 40 MG INJECTED)
     Route: 048
  15. STAVUDINE [Suspect]
     Active Substance: STAVUDINE
     Indication: HIV infection
     Dosage: UNK UNK, UNKNOWN
     Route: 065
  16. DIDANOSINE [Suspect]
     Active Substance: DIDANOSINE
     Indication: Hepatitis C
     Dosage: UNK UNK, UNKNOWN (1 ML OF TRIAMCINOLONE 40 MG INJECTED)
     Route: 065
  17. DIDANOSINE [Suspect]
     Active Substance: DIDANOSINE
     Indication: HIV infection
     Dosage: UNK UNK, UNKNOWN
     Route: 065
  18. DIDANOSINE [Suspect]
     Active Substance: DIDANOSINE
     Indication: Chronic hepatitis C
     Dosage: UNK UNK, UNKNOWN
     Route: 065
  19. DIDANOSINE [Suspect]
     Active Substance: DIDANOSINE
     Dosage: UNK
     Route: 048
  20. RISPERIDONE [Suspect]
     Active Substance: RISPERIDONE
     Indication: HIV infection
     Dosage: UNK UNK, UNKNOWN
     Route: 065
  21. RISPERIDONE [Suspect]
     Active Substance: RISPERIDONE
     Indication: Hepatitis C
     Dosage: UNK UNK, UNKNOWN (1 ML OF TRIAMCINOLONE 40 MG INJECTED)
     Route: 048
  22. RISPERIDONE [Suspect]
     Active Substance: RISPERIDONE
     Indication: Chronic hepatitis C
     Dosage: UNK UNK, UNKNOWN
     Route: 065
  23. BIPERIDEN [Suspect]
     Active Substance: BIPERIDEN
     Indication: HIV infection
     Dosage: UNK UNK, UNKNOWN
     Route: 065
  24. BIPERIDEN [Suspect]
     Active Substance: BIPERIDEN
     Indication: Hepatitis C
     Dosage: UNK UNK, UNKNOWN (1 ML OF TRIAMCINOLONE 40 MG INJECTED)
     Route: 048
  25. BIPERIDEN [Suspect]
     Active Substance: BIPERIDEN
     Indication: Chronic hepatitis C
     Dosage: UNK UNK, UNKNOWN
     Route: 065
  26. METHADONE HYDROCHLORIDE [Suspect]
     Active Substance: METHADONE HYDROCHLORIDE
     Indication: Hepatitis C
     Dosage: UNK UNK, UNKNOWN (1 ML OF TRIAMCINOLONE 40 MG INJECTED)
     Route: 065
  27. METHADONE HYDROCHLORIDE [Suspect]
     Active Substance: METHADONE HYDROCHLORIDE
     Indication: HIV infection
     Dosage: UNK UNK, UNKNOWN
     Route: 048
  28. METHADONE HYDROCHLORIDE [Suspect]
     Active Substance: METHADONE HYDROCHLORIDE
     Indication: Chronic hepatitis C
     Dosage: UNK UNK, UNKNOWN
     Route: 065
  29. CYAMEMAZINE [Suspect]
     Active Substance: CYAMEMAZINE
     Indication: HIV infection
     Dosage: UNK UNK, UNKNOWN
     Route: 065
  30. CYAMEMAZINE [Suspect]
     Active Substance: CYAMEMAZINE
     Indication: Chronic hepatitis C
     Dosage: UNK UNK, UNKNOWN
     Route: 048
  31. CYAMEMAZINE [Suspect]
     Active Substance: CYAMEMAZINE
     Indication: Hepatitis C
     Dosage: UNK UNK, UNKNOWN (1 ML OF TRIAMCINOLONE 40 MG INJECTED)
     Route: 065

REACTIONS (3)
  - Hepatic fibrosis [Unknown]
  - Drug-induced liver injury [Recovered/Resolved]
  - Off label use [Unknown]
